FAERS Safety Report 20795207 (Version 2)
Quarter: 2022Q4

REPORT INFORMATION
  Report Type: Report from Study
  Country: US (occurrence: US)
  Receive Date: 20220506
  Receipt Date: 20221017
  Transmission Date: 20230113
  Serious: Yes (Hospitalization)
  Sender: FDA-Public Use
  Company Number: US-ABBVIE-22K-163-4382514-00

PATIENT
  Sex: Male

DRUGS (2)
  1. RINVOQ [Suspect]
     Active Substance: UPADACITINIB
     Indication: Rheumatoid arthritis
     Dosage: STRENGTH: 15 MG
     Route: 048
     Dates: start: 202201
  2. RINVOQ [Suspect]
     Active Substance: UPADACITINIB
     Indication: Rheumatoid arthritis
     Dosage: MISSED DOSE
     Route: 048
     Dates: end: 2022

REACTIONS (9)
  - Seizure [Recovered/Resolved]
  - Abdominal discomfort [Unknown]
  - Seizure [Recovered/Resolved]
  - Drug ineffective [Unknown]
  - Nausea [Unknown]
  - Fall [Unknown]
  - Vomiting [Unknown]
  - Arthralgia [Unknown]
  - Seizure [Unknown]

NARRATIVE: CASE EVENT DATE: 20220101
